FAERS Safety Report 5239360-0 (Version None)
Quarter: 2007Q1

REPORT INFORMATION
  Report Type: 
  Country: None (occurrence: None)
  Receive Date: 20070214
  Receipt Date: 20070214
  Transmission Date: 20070707
  Serious: Yes (Hospitalization)
  Sender: FDA-Public Use
  Company Number: None

PATIENT
  Age: 74 Year
  Sex: Male
  Weight: 87.0906 kg

DRUGS (11)
  1. ASPIRIN [Suspect]
  2. ARTIFICIAL TEARS POLYVINYL ALCOHOL [Concomitant]
  3. BICALUTAMIDE [Concomitant]
  4. ENALAPRIL MALEATE [Concomitant]
  5. FLUNISOLIDE [Concomitant]
  6. GOSERELIN ACETATE [Concomitant]
  7. IMIPRAMINE HCL [Concomitant]
  8. KETOCONAZOLE 2% [Concomitant]
  9. MECLIZINE HCL [Concomitant]
  10. MEDROXYPROGESTERONE ACETATE [Concomitant]
  11. TOLTERODINE TARTRATE [Concomitant]

REACTIONS (2)
  - ANAEMIA [None]
  - CHEST PAIN [None]
